FAERS Safety Report 5078473-3 (Version None)
Quarter: 2006Q3

REPORT INFORMATION
  Report Type: 
  Country: None (occurrence: None)
  Receive Date: 20060811
  Receipt Date: 20060801
  Transmission Date: 20061208
  Serious: Yes (Other)
  Sender: FDA-Public Use
  Company Number: PHBS2006BR11544

PATIENT
  Age: 42 Year
  Sex: Female
  Weight: 62 kg

DRUGS (1)
  1. METHERGINE [Suspect]
     Indication: MENSTRUAL DISORDER
     Route: 048
     Dates: start: 20060801, end: 20060801

REACTIONS (5)
  - HAEMORRHAGE [None]
  - HYPERHIDROSIS [None]
  - MALAISE [None]
  - TREMOR [None]
  - VOMITING [None]
